FAERS Safety Report 5191965-1 (Version None)
Quarter: 2006Q4

REPORT INFORMATION
  Report Type: 
  Country: None (occurrence: None)
  Receive Date: 20061227
  Receipt Date: 20061010
  Transmission Date: 20070319
  Serious: Yes (Death)
  Sender: FDA-Public Use
  Company Number: MX-AVENTIS-200620606GDDC

PATIENT
  Age: 75 Year
  Sex: Female
  Weight: 63 kg

DRUGS (3)
  1. TAXOTERE [Suspect]
     Indication: BREAST CANCER METASTATIC
     Route: 042
  2. DOXOLEM RU [Suspect]
     Indication: BREAST CANCER METASTATIC
     Route: 042
  3. EPREX [Suspect]
     Indication: ANAEMIA OF MALIGNANT DISEASE
     Dosage: DOSE: MEDICATION NOT GIVEN

REACTIONS (1)
  - RENAL FAILURE [None]
